FAERS Safety Report 14280661 (Version 1)
Quarter: 2017Q4

REPORT INFORMATION
  Report Type: Spontaneous
  Country: US (occurrence: None)
  Receive Date: 20171212
  Receipt Date: 20171212
  Transmission Date: 20180321
  Serious: Yes (Hospitalization)
  Sender: FDA-Public Use
  Company Number: None

PATIENT
  Age: 63 Year
  Sex: Male

DRUGS (6)
  1. METOPROLOL. [Concomitant]
     Active Substance: METOPROLOL
  2. LOSARTAN. [Concomitant]
     Active Substance: LOSARTAN
  3. BOSULIF [Suspect]
     Active Substance: BOSUTINIB MONOHYDRATE
     Indication: MYELOID LEUKAEMIA
     Route: 048
     Dates: start: 20160219
  4. NORVASC [Concomitant]
     Active Substance: AMLODIPINE BESYLATE
  5. FUROSEMIDE. [Concomitant]
     Active Substance: FUROSEMIDE
  6. TRIAMCINOLONE CREAM [Concomitant]
     Active Substance: TRIAMCINOLONE

REACTIONS (6)
  - Oedema peripheral [None]
  - Fluid retention [None]
  - Pain in extremity [None]
  - Face oedema [None]
  - Fatigue [None]
  - Bone pain [None]

NARRATIVE: CASE EVENT DATE: 201612
